FAERS Safety Report 19021292 (Version 4)
Quarter: 2021Q1

REPORT INFORMATION
  Report Type: Report from Study
  Country: US (occurrence: US)
  Receive Date: 20210317
  Receipt Date: 20210326
  Transmission Date: 20210420
  Serious: Yes (Death)
  Sender: FDA-Public Use
  Company Number: US-PFIZER INC-2021264668

PATIENT
  Sex: Male

DRUGS (5)
  1. DOXORUBICIN HCL [Suspect]
     Active Substance: DOXORUBICIN HYDROCHLORIDE
     Indication: SARCOMA
     Dosage: 20 MG/M2, DAILY; (AS A CONTINUOUS INTRAVENOUS INFUSION VIA A CENTRAL LINE DAYS 1 TO 3 ) 3 CYCLIC
     Route: 042
  2. IFOSFAMIDE. [Suspect]
     Active Substance: IFOSFAMIDE
     Indication: SARCOMA
     Dosage: 2500 MG/M2, DAILY; (INTRAVENOUS INFUSION VIA A PERIPHERAL LINE DAYS 1 TO 3) 3 CYCLES
  3. FILGRASTIM [Concomitant]
     Active Substance: FILGRASTIM
     Dosage: 5 UG/KG, DAILY STARTING ON DAY 5
     Route: 058
  4. DACARBAZINE. [Suspect]
     Active Substance: DACARBAZINE
     Indication: SARCOMA
     Dosage: 225 MG/M2, DAILY; (AS A CONTINUOUS INTRAVENOUS INFUSION VIA A CENTRAL LINE DAYS 1 TO 3) 3 CYCLIC
     Route: 042
  5. MESNA. [Suspect]
     Active Substance: MESNA
     Indication: SARCOMA
     Dosage: 2500 MG/M2, DAILY;  (INTRAVENOUS INFUSION VIA A PERIPHERAL LINE DAYS 1 TO 4) 3 CYCLES
     Route: 042

REACTIONS (3)
  - Second primary malignancy [Fatal]
  - Acute myeloid leukaemia [Fatal]
  - Haematotoxicity [Fatal]
